FAERS Safety Report 8476991 (Version 3)
Quarter: 2012Q4

REPORT INFORMATION
  Report Type: 
  Country: DE (occurrence: DE)
  Receive Date: 20120326
  Receipt Date: 20120828
  Transmission Date: 20130627
  Serious: Yes (Hospitalization)
  Sender: FDA-Public Use
  Company Number: DE-B.I. PHARMACEUTICALS,INC./RIDGEFIELD-2012-DE-00793DE

PATIENT
  Age: 50 Year
  Sex: Female

DRUGS (1)
  1. PRADAXA [Suspect]
     Dates: start: 20120313

REACTIONS (3)
  - Shock haemorrhagic [Unknown]
  - Haemorrhage [Unknown]
  - Coagulopathy [Unknown]
